APPROVED DRUG PRODUCT: DIASTAT
Active Ingredient: DIAZEPAM
Strength: 2.5MG/0.5ML (5MG/ML)
Dosage Form/Route: GEL;RECTAL
Application: N020648 | Product #001 | TE Code: AB
Applicant: BAUSCH HEALTH US LLC
Approved: Jul 29, 1997 | RLD: Yes | RS: Yes | Type: RX